FAERS Safety Report 9781160 (Version 1)
Quarter: 2013Q4

REPORT INFORMATION
  Report Type: Spontaneous
  Country: US (occurrence: None)
  Receive Date: 20131220
  Receipt Date: 20131220
  Transmission Date: 20140711
  Serious: Yes (Disabling)
  Sender: FDA-Public Use
  Company Number: 1991597

PATIENT
  Sex: Male

DRUGS (1)
  1. METOCLOPRAMIDE [Suspect]
     Indication: GASTROOESOPHAGEAL REFLUX DISEASE

REACTIONS (7)
  - Nerve injury [None]
  - Asthenia [None]
  - Muscle twitching [None]
  - Product label issue [None]
  - Spinal cord injury [None]
  - Muscle atrophy [None]
  - Nervous system disorder [None]
